FAERS Safety Report 19750378 (Version 3)
Quarter: 2021Q3

REPORT INFORMATION
  Report Type: Report from Study
  Country: US (occurrence: US)
  Receive Date: 20210826
  Receipt Date: 20210920
  Transmission Date: 20211014
  Serious: Yes (Hospitalization, Other)
  Sender: FDA-Public Use
  Company Number: US-JNJFOC-20210839963

PATIENT
  Age: 77 Year
  Sex: Male
  Weight: 74.1 kg

DRUGS (6)
  1. ADEMPAS [Concomitant]
     Active Substance: RIOCIGUAT
  2. DIGOXIN. [Concomitant]
     Active Substance: DIGOXIN
  3. ELIQUIS [Concomitant]
     Active Substance: APIXABAN
  4. PROTONIX [Concomitant]
     Active Substance: PANTOPRAZOLE SODIUM
     Dosage: 40 MG ONE TABLET TWICE A DAY
  5. UPTRAVI [Suspect]
     Active Substance: SELEXIPAG
     Indication: PULMONARY ARTERIAL HYPERTENSION
     Route: 048
  6. SUCRALFATE. [Concomitant]
     Active Substance: SUCRALFATE
     Dosage: 1 GRAM ONE TABLET FOUR TIMES A DAY FOR 14 DAYS

REACTIONS (5)
  - Pulmonary oedema [Unknown]
  - Pneumonia [Unknown]
  - Blood loss anaemia [Unknown]
  - Oesophageal irritation [Unknown]
  - Gastric ulcer [Unknown]

NARRATIVE: CASE EVENT DATE: 20210901
